FAERS Safety Report 4278561-5 (Version None)
Quarter: 2004Q1

REPORT INFORMATION
  Report Type: 
  Country: None (occurrence: None)
  Receive Date: 20040122
  Receipt Date: 20040102
  Transmission Date: 20041129
  Serious: No
  Sender: FDA-Public Use
  Company Number: A02200400002

PATIENT
  Age: 74 Year
  Sex: Male

DRUGS (1)
  1. PLAVIX [Suspect]
     Dosage: 75 MG OD ORAL
     Route: 048
     Dates: start: 20021001, end: 20031201

REACTIONS (2)
  - PANCYTOPENIA [None]
  - REFRACTORY ANAEMIA [None]
